FAERS Safety Report 26054653 (Version 1)
Quarter: 2025Q4

REPORT INFORMATION
  Report Type: Spontaneous
  Country: US (occurrence: US)
  Receive Date: 20251117
  Receipt Date: 20251117
  Transmission Date: 20260119
  Serious: Yes (Other)
  Sender: BRAEBURN PHARMACEUTICALS
  Company Number: US-BRAEBURN PHARMACEUTICALS-US-BRA-25-000975

PATIENT
  Sex: Male
  Weight: 3.4 kg

DRUGS (2)
  1. BRIXADI [Suspect]
     Active Substance: BUPRENORPHINE
     Indication: Product used for unknown indication
     Dosage: 32 MILLIGRAM, QW
     Route: 064
     Dates: start: 20250610
  2. BRIXADI [Suspect]
     Active Substance: BUPRENORPHINE
     Dosage: 32 MILLIGRAM, QW
     Route: 064
     Dates: start: 20250624, end: 20250624

REACTIONS (3)
  - Shoulder dystocia [Unknown]
  - Nonreassuring foetal heart rate pattern [Unknown]
  - Foetal exposure during pregnancy [Unknown]

NARRATIVE: CASE EVENT DATE: 20250101
